FAERS Safety Report 5701944-0 (Version None)
Quarter: 2008Q2

REPORT INFORMATION
  Report Type: 
  Country: None (occurrence: None)
  Receive Date: 20080411
  Receipt Date: 20080328
  Transmission Date: 20081010
  Serious: Yes (Hospitalization, Other)
  Sender: FDA-Public Use
  Company Number: US-AMGEN-US272310

PATIENT
  Age: 85 Year
  Sex: Female
  Weight: 44.5 kg

DRUGS (7)
  1. PROCRIT [Suspect]
     Indication: RENAL FAILURE CHRONIC
     Route: 065
     Dates: start: 19960101
  2. INDERAL [Concomitant]
     Route: 065
  3. PREDNISONE [Concomitant]
     Route: 065
     Dates: start: 19950101, end: 20070101
  4. ROCEPHIN [Concomitant]
     Route: 065
  5. CIPRO [Concomitant]
     Route: 065
  6. KEFLEX [Concomitant]
     Route: 065
  7. DIFLUCAN [Concomitant]
     Route: 065

REACTIONS (4)
  - HAEMATOCRIT DECREASED [None]
  - HEADACHE [None]
  - JOINT ARTHROPLASTY [None]
  - KNEE ARTHROPLASTY [None]
